FAERS Safety Report 8936719 (Version 2)
Quarter: 2012Q4

REPORT INFORMATION
  Report Type: 
  Country: AU (occurrence: AU)
  Receive Date: 20121130
  Receipt Date: 20121210
  Transmission Date: 20130627
  Serious: Yes (Hospitalization, Disabling, Other)
  Sender: FDA-Public Use
  Company Number: AU-B.I. PHARMACEUTICALS,INC./RIDGEFIELD-2012-AU-01929AU

PATIENT
  Age: 68 Year
  Sex: Female

DRUGS (3)
  1. PRADAXA [Suspect]
     Indication: ATRIAL FIBRILLATION
     Dosage: 300 mg
  2. DIABEX [Concomitant]
     Dosage: 1000 mg
  3. SOTALOL [Concomitant]
     Dosage: 160 mg

REACTIONS (4)
  - Ischaemic stroke [Recovered/Resolved with Sequelae]
  - Aphasia [Recovered/Resolved]
  - VIIth nerve paralysis [Not Recovered/Not Resolved]
  - Ataxia [Recovered/Resolved]
